FAERS Safety Report 7843953-1 (Version None)
Quarter: 2011Q4

REPORT INFORMATION
  Report Type: 
  Country: None (occurrence: None)
  Receive Date: 20111025
  Receipt Date: 20111013
  Transmission Date: 20120403
  Serious: Yes (Other)
  Sender: FDA-Public Use
  Company Number: JP-PFIZER INC-2011255152

PATIENT
  Age: 68 Year
  Sex: Male

DRUGS (4)
  1. JANUVIA [Concomitant]
     Dosage: UNK
     Route: 048
  2. ENALAPRIL MALEATE [Concomitant]
     Dosage: UNK
     Route: 048
  3. ACTOS [Concomitant]
     Dosage: UNK
     Route: 048
  4. ATORVASTATIN CALCIUM [Suspect]
     Indication: HYPERCHOLESTEROLAEMIA
     Dosage: 5 MG, 1X/DAY
     Route: 048
     Dates: start: 20101021

REACTIONS (1)
  - BLOOD UREA INCREASED [None]
